FAERS Safety Report 21747521 (Version 1)
Quarter: 2022Q4

REPORT INFORMATION
  Report Type: Spontaneous
  Country: US (occurrence: US)
  Receive Date: 20221219
  Receipt Date: 20221219
  Transmission Date: 20230113
  Serious: No
  Sender: FDA-Public Use
  Company Number: US-NOVEN PHARMACEUTICALS, INC.-2022-NOV-US000409

PATIENT
  Age: 63 Year
  Sex: Female

DRUGS (1)
  1. ESTRADIOL [Suspect]
     Active Substance: ESTRADIOL
     Indication: Blood oestrogen decreased
     Dosage: 0.075 MILLIGRAM, 1 PATCH DAILY
     Route: 062

REACTIONS (3)
  - Lethargy [Recovered/Resolved]
  - Alopecia [Recovered/Resolved]
  - Dermal absorption impaired [Recovered/Resolved]
